FAERS Safety Report 23739103 (Version 1)
Quarter: 2024Q2

REPORT INFORMATION
  Report Type: Spontaneous
  Country: CN (occurrence: CN)
  Receive Date: 20240413
  Receipt Date: 20240413
  Transmission Date: 20240716
  Serious: Yes (Hospitalization, Other)
  Sender: FDA-Public Use
  Company Number: CN-NOVITIUMPHARMA-2024CNNVP00458

PATIENT
  Age: 57 Year
  Sex: Female

DRUGS (6)
  1. PREDNISONE [Suspect]
     Active Substance: PREDNISONE
     Indication: Glomerulonephritis membranoproliferative
  2. PREDNISONE [Suspect]
     Active Substance: PREDNISONE
     Dosage: DOSE REDUCED
  3. PREDNISONE [Suspect]
     Active Substance: PREDNISONE
     Dosage: DOSE REDUCED
  4. DEXAMETHASONE [Suspect]
     Active Substance: DEXAMETHASONE
     Indication: COVID-19
  5. CYCLOPHOSPHAMIDE [Concomitant]
     Active Substance: CYCLOPHOSPHAMIDE
     Indication: Glomerulonephritis membranoproliferative
  6. FAVIPIRAVIR [Concomitant]
     Active Substance: FAVIPIRAVIR
     Indication: COVID-19

REACTIONS (3)
  - Meningitis cryptococcal [Recovering/Resolving]
  - COVID-19 [Recovering/Resolving]
  - Off label use [Unknown]
